FAERS Safety Report 17524753 (Version 1)
Quarter: 2020Q1

REPORT INFORMATION
  Report Type: Spontaneous
  Country: US (occurrence: US)
  Receive Date: 20200303
  Receipt Date: 20200303
  Transmission Date: 20200409
  Serious: Yes (Death)
  Sender: FDA-Public Use
  Company Number: None

PATIENT
  Age: 90 Year
  Sex: Female

DRUGS (2)
  1. AFINITOR [Concomitant]
     Active Substance: EVEROLIMUS
  2. EXEMESTANE 25MG TAB [Suspect]
     Active Substance: EXEMESTANE
     Route: 048
     Dates: start: 202002, end: 202003

REACTIONS (1)
  - Death [None]

NARRATIVE: CASE EVENT DATE: 20200303
